FAERS Safety Report 17924422 (Version 5)
Quarter: 2021Q4

REPORT INFORMATION
  Report Type: Spontaneous
  Country: US (occurrence: US)
  Receive Date: 20200622
  Receipt Date: 20211130
  Transmission Date: 20220303
  Serious: Yes (Other)
  Sender: FDA-Public Use
  Company Number: US-GILEAD-2020-0474191

PATIENT
  Age: 57 Year
  Sex: Male
  Weight: 104.31 kg

DRUGS (48)
  1. ATRIPLA [Suspect]
     Active Substance: EFAVIRENZ\EMTRICITABINE\TENOFOVIR DISOPROXIL FUMARATE
     Indication: HIV infection
     Dosage: UNK
     Route: 048
     Dates: start: 2006, end: 20120816
  2. ATRIPLA [Suspect]
     Active Substance: EFAVIRENZ\EMTRICITABINE\TENOFOVIR DISOPROXIL FUMARATE
     Dosage: UNK
     Route: 048
     Dates: start: 2006
  3. ATRIPLA [Suspect]
     Active Substance: EFAVIRENZ\EMTRICITABINE\TENOFOVIR DISOPROXIL FUMARATE
     Dosage: UNK
     Route: 048
     Dates: start: 20110217, end: 20110712
  4. ATRIPLA [Suspect]
     Active Substance: EFAVIRENZ\EMTRICITABINE\TENOFOVIR DISOPROXIL FUMARATE
     Dosage: UNK
     Route: 048
     Dates: start: 20110712, end: 20111122
  5. ATRIPLA [Suspect]
     Active Substance: EFAVIRENZ\EMTRICITABINE\TENOFOVIR DISOPROXIL FUMARATE
     Dosage: UNK
     Route: 048
     Dates: start: 20111214, end: 20120816
  6. VIREAD [Suspect]
     Active Substance: TENOFOVIR DISOPROXIL FUMARATE
     Indication: HIV infection
     Dosage: UNK
     Route: 048
     Dates: start: 20120816, end: 2012
  7. EMTRIVA [Concomitant]
     Active Substance: EMTRICITABINE
  8. EPIVIR [Concomitant]
     Active Substance: LAMIVUDINE
  9. SUSTIVA [Concomitant]
     Active Substance: EFAVIRENZ
  10. ZIAGEN [Concomitant]
     Active Substance: ABACAVIR SULFATE
  11. ABACAVIR [Concomitant]
     Active Substance: ABACAVIR
  12. ERGOCALCIFEROL [Concomitant]
     Active Substance: ERGOCALCIFEROL
  13. INSULIN NOS [Concomitant]
     Active Substance: INSULIN NOS
  14. GLUCOTROL [Concomitant]
     Active Substance: GLIPIZIDE
  15. NICODERM CQ [Concomitant]
     Active Substance: NICOTINE
  16. XALATAN [Concomitant]
     Active Substance: LATANOPROST
  17. ALLOPURINOL [Concomitant]
     Active Substance: ALLOPURINOL
  18. TRIAMCINOLONE [Concomitant]
     Active Substance: TRIAMCINOLONE
  19. ALBUTEROL [Concomitant]
     Active Substance: ALBUTEROL
  20. FLUTICASONE [Concomitant]
     Active Substance: FLUTICASONE
  21. OXYCODONE [Concomitant]
     Active Substance: OXYCODONE
  22. CARVEDILOL [Concomitant]
     Active Substance: CARVEDILOL
  23. VITAMIN B [Concomitant]
     Active Substance: VITAMIN B
  24. LAMIVUDINE [Concomitant]
     Active Substance: LAMIVUDINE
  25. SERTRALINE [Concomitant]
     Active Substance: SERTRALINE HYDROCHLORIDE
  26. LISINOPRIL [Concomitant]
     Active Substance: LISINOPRIL
  27. PRAVASTATIN [Concomitant]
     Active Substance: PRAVASTATIN
  28. METFORMIN [Concomitant]
     Active Substance: METFORMIN HYDROCHLORIDE
  29. BUPROPION [Concomitant]
     Active Substance: BUPROPION
  30. BUSPIRONE [Concomitant]
     Active Substance: BUSPIRONE HYDROCHLORIDE
  31. COLCHICINE [Concomitant]
     Active Substance: COLCHICINE
  32. LABETALOL [Concomitant]
     Active Substance: LABETALOL\LABETALOL HYDROCHLORIDE
  33. DOXAZOSIN [Concomitant]
     Active Substance: DOXAZOSIN MESYLATE
  34. ROSUVASTATIN [Concomitant]
     Active Substance: ROSUVASTATIN
  35. GLYBURIDE [Concomitant]
     Active Substance: GLYBURIDE
  36. VENLAFAXINE [Concomitant]
     Active Substance: VENLAFAXINE HYDROCHLORIDE
  37. GLIPIZIDE [Concomitant]
     Active Substance: GLIPIZIDE
  38. ACETAMINOPHEN [Concomitant]
     Active Substance: ACETAMINOPHEN
  39. AMOXICILLIN [Concomitant]
     Active Substance: AMOXICILLIN
  40. ASPIRIN [Concomitant]
     Active Substance: ASPIRIN
  41. CRESTOR [Concomitant]
     Active Substance: ROSUVASTATIN CALCIUM
  42. PREDNISONE [Concomitant]
     Active Substance: PREDNISONE
  43. ZOLOFT [Concomitant]
     Active Substance: SERTRALINE HYDROCHLORIDE
  44. CLOBETASOL [Concomitant]
     Active Substance: CLOBETASOL
  45. BREO ELLIPTA [Concomitant]
     Active Substance: FLUTICASONE FUROATE\VILANTEROL TRIFENATATE
     Indication: Dyspnoea
  46. ZYLOPRIM [Concomitant]
     Active Substance: ALLOPURINOL
  47. CARDURA [Concomitant]
     Active Substance: DOXAZOSIN MESYLATE
     Indication: Focal segmental glomerulosclerosis
  48. LASIX [Concomitant]
     Active Substance: FUROSEMIDE

REACTIONS (20)
  - End stage renal disease [Recovered/Resolved]
  - Chronic kidney disease [Not Recovered/Not Resolved]
  - Chronic kidney disease [Not Recovered/Not Resolved]
  - Acute kidney injury [Unknown]
  - Renal failure [Not Recovered/Not Resolved]
  - Tooth loss [Not Recovered/Not Resolved]
  - Bone density decreased [Unknown]
  - Pain [Not Recovered/Not Resolved]
  - Emotional distress [Not Recovered/Not Resolved]
  - Anxiety [Not Recovered/Not Resolved]
  - Anhedonia [Not Recovered/Not Resolved]
  - Focal segmental glomerulosclerosis [Unknown]
  - Anaemia of chronic disease [Not Recovered/Not Resolved]
  - Hyperparathyroidism secondary [Not Recovered/Not Resolved]
  - Hyperparathyroidism secondary [Unknown]
  - Erectile dysfunction [Recovered/Resolved]
  - Loss of personal independence in daily activities [Unknown]
  - Bone metabolism disorder [Not Recovered/Not Resolved]
  - Proteinuria [Unknown]
  - Dyspnoea [Unknown]

NARRATIVE: CASE EVENT DATE: 20060101
